FAERS Safety Report 23769899 (Version 1)
Quarter: 2024Q2

REPORT INFORMATION
  Report Type: Spontaneous
  Country: AU (occurrence: AU)
  Receive Date: 20240422
  Receipt Date: 20240422
  Transmission Date: 20240715
  Serious: Yes (Other)
  Sender: FDA-Public Use
  Company Number: AU-BAYER-2024A059940

PATIENT
  Age: 86 Year
  Sex: Male

DRUGS (1)
  1. XARELTO [Suspect]
     Active Substance: RIVAROXABAN
     Indication: Atrial fibrillation
     Route: 048

REACTIONS (8)
  - Adrenal haemorrhage [Unknown]
  - Retroperitoneal haematoma [Unknown]
  - Adrenal haematoma [Unknown]
  - Shock haemorrhagic [Unknown]
  - Haemodynamic instability [Unknown]
  - Hypotension [Unknown]
  - Blood loss anaemia [Unknown]
  - Self-medication [Unknown]
